FAERS Safety Report 12164156 (Version 1)
Quarter: 2016Q1

REPORT INFORMATION
  Report Type: Spontaneous
  Country: US (occurrence: US)
  Receive Date: 20160309
  Receipt Date: 20160309
  Transmission Date: 20160526
  Serious: No
  Sender: FDA-Public Use
  Company Number: US-ROCHE-1612072

PATIENT
  Sex: Female
  Weight: 117.13 kg

DRUGS (2)
  1. XOLAIR [Suspect]
     Active Substance: OMALIZUMAB
     Indication: ASTHMA
     Route: 058
     Dates: start: 20150603
  2. ZYFLO [Concomitant]
     Active Substance: ZILEUTON
     Route: 065

REACTIONS (3)
  - Blood potassium decreased [Unknown]
  - Fatigue [Recovering/Resolving]
  - Muscular weakness [Unknown]
